FAERS Safety Report 4815839-8 (Version None)
Quarter: 2005Q4

REPORT INFORMATION
  Report Type: 
  Country: None (occurrence: None)
  Receive Date: 20051031
  Receipt Date: 20050718
  Transmission Date: 20060501
  Serious: Yes (Hospitalization)
  Sender: FDA-Public Use
  Company Number: US-MERCK-0507USA02364

PATIENT
  Age: 44 Year
  Sex: Male
  Weight: 86 kg

DRUGS (8)
  1. HYDROCODONE BITARTRATE [Concomitant]
     Indication: PAIN
     Route: 065
     Dates: start: 19970101
  2. HYDROCODONE BITARTRATE [Concomitant]
     Indication: WRIST FRACTURE
     Route: 065
     Dates: start: 19970101
  3. ROXICET [Concomitant]
     Indication: BACK PAIN
     Route: 065
     Dates: start: 20020301, end: 20020501
  4. LIPITOR [Concomitant]
     Route: 065
     Dates: start: 20020301, end: 20030401
  5. OXYCONTIN [Concomitant]
     Route: 065
     Dates: start: 20020301, end: 20020501
  6. IBUPROFEN [Concomitant]
     Route: 065
  7. VIOXX [Suspect]
     Indication: CLAVICLE FRACTURE
     Route: 048
     Dates: start: 20000101, end: 20040220
  8. VIOXX [Suspect]
     Indication: WRIST FRACTURE
     Route: 048
     Dates: start: 20000101, end: 20040220

REACTIONS (12)
  - ANXIETY [None]
  - BACK PAIN [None]
  - DEPRESSION [None]
  - DISORIENTATION [None]
  - DIZZINESS [None]
  - EMOTIONAL DISTRESS [None]
  - FEAR [None]
  - GASTROINTESTINAL DISORDER [None]
  - LOSS OF CONSCIOUSNESS [None]
  - MYOCARDIAL INFARCTION [None]
  - PANIC ATTACK [None]
  - POLYTRAUMATISM [None]
